FAERS Safety Report 4866092-0 (Version None)
Quarter: 2005Q4

REPORT INFORMATION
  Report Type: 
  Country: None (occurrence: None)
  Receive Date: 20051227
  Receipt Date: 20051216
  Transmission Date: 20060501
  Serious: Yes (Death, Life-Threatening, Other)
  Sender: FDA-Public Use
  Company Number: JP-JNJFOC-20050902176

PATIENT
  Sex: Female
  Weight: 42 kg

DRUGS (13)
  1. REMICADE [Suspect]
     Route: 042
  2. REMICADE [Suspect]
     Route: 042
  3. REMICADE [Suspect]
     Route: 042
  4. REMICADE [Suspect]
     Route: 042
  5. REMICADE [Suspect]
     Route: 042
  6. REMICADE [Suspect]
     Route: 042
  7. REMICADE [Suspect]
     Route: 042
  8. REMICADE [Suspect]
     Indication: CROHN'S DISEASE
     Route: 042
  9. PREDONINE [Concomitant]
     Indication: CROHN'S DISEASE
     Route: 042
  10. PREDONINE [Concomitant]
     Route: 048
  11. GRAN [Concomitant]
     Indication: MYELODYSPLASTIC SYNDROME
     Route: 058
  12. ELENTAL [Concomitant]
     Route: 048
  13. ELENTAL [Concomitant]
     Indication: CROHN'S DISEASE
     Route: 048

REACTIONS (6)
  - CANDIDIASIS [None]
  - ILEUS [None]
  - LUNG ABSCESS [None]
  - METHICILLIN-RESISTANT STAPHYLOCOCCAL AUREUS TEST [None]
  - PNEUMONIA ASPIRATION [None]
  - RESPIRATORY FAILURE [None]
